FAERS Safety Report 10396641 (Version 2)
Quarter: 2014Q3

REPORT INFORMATION
  Report Type: Spontaneous
  Country: US (occurrence: US)
  Receive Date: 20140820
  Receipt Date: 20140820
  Transmission Date: 20150326
  Serious: Yes (Hospitalization)
  Sender: FDA-Public Use
  Company Number: US-GLAXOSMITHKLINE-A0834044A

PATIENT
  Sex: Female

DRUGS (1)
  1. AVANDIA [Suspect]
     Active Substance: ROSIGLITAZONE MALEATE
     Indication: DIABETES MELLITUS
     Dosage: 8MG PER DAY
     Route: 048
     Dates: start: 20050126, end: 20090530

REACTIONS (5)
  - Cerebral infarction [Unknown]
  - Cardiac failure [Unknown]
  - Condition aggravated [Unknown]
  - Atrial fibrillation [Unknown]
  - Cerebrovascular accident [Unknown]
